FAERS Safety Report 8102120-7 (Version None)
Quarter: 2012Q1

REPORT INFORMATION
  Report Type: 
  Country: None (occurrence: None)
  Receive Date: 20120131
  Receipt Date: 20120123
  Transmission Date: 20120608
  Serious: Yes (Hospitalization)
  Sender: FDA-Public Use
  Company Number: US-ASTRAZENECA-2011SE73858

PATIENT
  Age: 56 Year
  Sex: Male
  Weight: 57.2 kg

DRUGS (2)
  1. NEXIUM [Suspect]
     Route: 048
  2. PRILOSEC [Suspect]
     Route: 048

REACTIONS (4)
  - DRUG EFFECT DECREASED [None]
  - VOMITING [None]
  - GASTROENTERITIS [None]
  - DRUG DOSE OMISSION [None]
